FAERS Safety Report 10445623 (Version 1)
Quarter: 2014Q3

REPORT INFORMATION
  Report Type: Spontaneous
  Country: US (occurrence: US)
  Receive Date: 20140908
  Receipt Date: 20140908
  Transmission Date: 20150326
  Serious: No
  Sender: FDA-Public Use
  Company Number: US-BRISTOL-MYERS SQUIBB COMPANY-20752903

PATIENT
  Sex: Female

DRUGS (1)
  1. ABILIFY [Suspect]
     Active Substance: ARIPIPRAZOLE

REACTIONS (6)
  - Confusional state [Unknown]
  - Memory impairment [Unknown]
  - Fatigue [Unknown]
  - Blood glucose increased [Unknown]
  - Malaise [Unknown]
  - Dizziness [Unknown]
